FAERS Safety Report 10004140 (Version 1)
Quarter: 2014Q1

REPORT INFORMATION
  Report Type: Spontaneous
  Country: US (occurrence: US)
  Receive Date: 20140312
  Receipt Date: 20140312
  Transmission Date: 20141002
  Serious: No
  Sender: FDA-Public Use
  Company Number: US-INCYTE CORPORATION-2014IN000319

PATIENT
  Age: 68 Year
  Sex: Female

DRUGS (9)
  1. JAKAFI [Suspect]
     Dosage: 15 MG, BID
     Route: 048
     Dates: start: 20121228
  2. ASPIRIN [Concomitant]
  3. HYDREA [Concomitant]
  4. LORATADINE [Concomitant]
  5. OMEPRAZOLE [Concomitant]
  6. OXYCODONE [Concomitant]
  7. PAROXETINE [Concomitant]
  8. TUMS                               /00193601/ [Concomitant]
  9. SPIRONOLACTONE [Concomitant]

REACTIONS (2)
  - Nausea [Recovered/Resolved]
  - Drug administration error [Unknown]
